FAERS Safety Report 14026511 (Version 4)
Quarter: 2017Q4

REPORT INFORMATION
  Report Type: Report from Study
  Country: DE (occurrence: DE)
  Receive Date: 20170929
  Receipt Date: 20171130
  Transmission Date: 20180321
  Serious: Yes (Hospitalization)
  Sender: FDA-Public Use
  Company Number: DE-ROCHE-1992364

PATIENT
  Age: 71 Year
  Sex: Male
  Weight: 80 kg

DRUGS (4)
  1. VEMURAFENIB. [Suspect]
     Active Substance: VEMURAFENIB
     Indication: MALIGNANT MELANOMA
     Dosage: LAST DATE OF DOSE PRIOR TO SAE 10/SEP/2017
     Route: 048
     Dates: start: 20170825
  2. COBIMETINIB. [Suspect]
     Active Substance: COBIMETINIB
     Indication: MALIGNANT MELANOMA
     Dosage: LAST DATE OF DOSE PRIOR TO SAE 10/SEP/2017
     Route: 048
     Dates: start: 20170825
  3. COBIMETINIB. [Suspect]
     Active Substance: COBIMETINIB
     Dosage: LAST DATE OF DOSE PRIOR TO SAE 01/OCT/2017
     Route: 048
     Dates: start: 20170918
  4. VEMURAFENIB. [Suspect]
     Active Substance: VEMURAFENIB
     Dosage: LAST DATE OF DOSE PRIOR TO SAE 01/OCT/2017
     Route: 048
     Dates: start: 20170918, end: 20171002

REACTIONS (3)
  - Acute kidney injury [Recovered/Resolved]
  - Acute kidney injury [Recovered/Resolved]
  - Diarrhoea [Unknown]

NARRATIVE: CASE EVENT DATE: 20170911
